FAERS Safety Report 10355394 (Version 1)
Quarter: 2014Q3

REPORT INFORMATION
  Report Type: Spontaneous
  Country: US (occurrence: US)
  Receive Date: 20140731
  Receipt Date: 20140731
  Transmission Date: 20150326
  Serious: No
  Sender: FDA-Public Use
  Company Number: US-TARO-2014TAR00069

PATIENT
  Age: 56 Year
  Sex: Female
  Weight: 73.47 kg

DRUGS (3)
  1. LAMICTAL [Concomitant]
     Active Substance: LAMOTRIGINE
     Dosage: UNK
     Dates: end: 2014
  2. FLUOCINONIDE CREAM USP 0.05% [Suspect]
     Active Substance: FLUOCINONIDE
     Indication: RASH
     Dosage: UNK UNK, 2X/DAY
     Route: 061
     Dates: start: 20140603
  3. SEROQUEL [Concomitant]
     Active Substance: QUETIAPINE FUMARATE
     Dosage: 300 MG, 1X/DAY

REACTIONS (3)
  - Drug ineffective [Recovering/Resolving]
  - Rash erythematous [Not Recovered/Not Resolved]
  - Blister [Not Recovered/Not Resolved]

NARRATIVE: CASE EVENT DATE: 201406
